FAERS Safety Report 15563136 (Version 2)
Quarter: 2018Q4

REPORT INFORMATION
  Report Type: Spontaneous
  Country: CA (occurrence: CA)
  Receive Date: 20181029
  Receipt Date: 20181221
  Transmission Date: 20190205
  Serious: Yes (Disabling)
  Sender: FDA-Public Use
  Company Number: CA-OTSUKA-2018_034678

PATIENT
  Age: 48 Year
  Sex: Female
  Weight: 90.72 kg

DRUGS (1)
  1. ABILIFY [Suspect]
     Active Substance: ARIPIPRAZOLE
     Indication: DEPRESSION
     Dosage: 5 MG, QD
     Route: 048
     Dates: start: 20130101, end: 20180101

REACTIONS (2)
  - Optic nerve injury [Not Recovered/Not Resolved]
  - Product use in unapproved indication [Unknown]

NARRATIVE: CASE EVENT DATE: 20130101
